FAERS Safety Report 4866625-4 (Version None)
Quarter: 2005Q4

REPORT INFORMATION
  Report Type: 
  Country: None (occurrence: None)
  Receive Date: 20051222
  Receipt Date: 20051214
  Transmission Date: 20060501
  Serious: Yes (Death)
  Sender: FDA-Public Use
  Company Number: 2005168314

PATIENT
  Age: 66 Year
  Sex: Female

DRUGS (5)
  1. PREDNISOLONE [Suspect]
     Indication: ARTHRITIS
     Dosage: 10 MG (10 MG, 1 IN 1 D), ORAL
     Route: 048
     Dates: start: 20020312, end: 20050101
  2. CALCICHEW-D3 (CALCIUM CARBONATE, COLECALCIFEROL) [Suspect]
     Indication: OSTEOPOROSIS
     Dosage: 2 DOSAGE FORM (1 IN 1 D), ORAL
     Route: 048
     Dates: start: 20020327, end: 20050101
  3. TERIPARATIDE (TERIPARATIDE) [Suspect]
     Indication: OSTEOPOROSIS
     Dosage: SUBCUTANEOUS
     Route: 058
     Dates: start: 20040524, end: 20050101
  4. FOSAMAX [Concomitant]
  5. LEVOTHYROXINE SODIUM [Concomitant]

REACTIONS (2)
  - MYOCARDIAL INFARCTION [None]
  - SUDDEN DEATH [None]
